FAERS Safety Report 4438715-1 (Version None)
Quarter: 2004Q3

REPORT INFORMATION
  Report Type: 
  Country: None (occurrence: None)
  Receive Date: 20040830
  Receipt Date: 20040830
  Transmission Date: 20050211
  Serious: Yes (Life-Threatening)
  Sender: FDA-Public Use
  Company Number: None

PATIENT
  Age: 9 Year
  Sex: Male
  Weight: 22.6799 kg

DRUGS (1)
  1. ADDERALL XR 25 [Suspect]
     Dosage: ONCE DAILY
     Dates: start: 20020909, end: 20030829

REACTIONS (4)
  - AMNESIA [None]
  - CARDIAC DISORDER [None]
  - TACHYCARDIA [None]
  - WEIGHT DECREASED [None]
